FAERS Safety Report 8882263 (Version 2)
Quarter: 2012Q4

REPORT INFORMATION
  Report Type: 
  Country: US (occurrence: US)
  Receive Date: 20121105
  Receipt Date: 20121214
  Transmission Date: 20130627
  Serious: Yes (Death, Hospitalization)
  Sender: FDA-Public Use
  Company Number: US-GENZYME-CLOF-1002378

PATIENT
  Age: 46 Year
  Sex: Male
  Weight: 73.9 kg

DRUGS (4)
  1. CLOLAR [Suspect]
     Indication: ACUTE MYELOID LEUKAEMIA RECURRENT
     Dosage: 78 mg, qd
     Route: 042
     Dates: start: 20120912, end: 20120916
  2. BUSULFAN [Suspect]
     Indication: ACUTE MYELOID LEUKAEMIA RECURRENT
     Dosage: 192 mg, qd
     Route: 042
     Dates: start: 20120913, end: 20120916
  3. TACROLIMUS [Concomitant]
     Indication: IMMUNOSUPPRESSION
     Dosage: UNK
     Route: 065
  4. PREDNISONE [Concomitant]
     Indication: LEUKAEMIA RECURRENT PROPHYLAXIS
     Dosage: UNK
     Route: 065

REACTIONS (1)
  - Acute myeloid leukaemia [Fatal]
